FAERS Safety Report 4726311-8 (Version None)
Quarter: 2005Q3

REPORT INFORMATION
  Report Type: 
  Country: None (occurrence: None)
  Receive Date: 20050727
  Receipt Date: 20050720
  Transmission Date: 20060218
  Serious: Yes (Other)
  Sender: FDA-Public Use
  Company Number: AU-ROCHE-411165

PATIENT
  Sex: Male

DRUGS (2)
  1. VESANOID [Suspect]
     Indication: DRUG USE FOR UNKNOWN INDICATION
     Route: 065
     Dates: start: 20050615, end: 20050720
  2. UNSPECIFIED MEDICATIONS [Concomitant]

REACTIONS (1)
  - ARTHRITIS [None]
